FAERS Safety Report 6076270 (Version 3)
Quarter: 2013Q2

REPORT INFORMATION
  Report Type: Spontaneous
  Country: FR (occurrence: FR)
  Receive Date: 20060704
  Receipt Date: 20130628
  Transmission Date: 20140414
  Serious: Yes (Death, Congenital Anomaly, Other)
  Sender: FDA-Public Use
  Company Number: FR-RB-3518-2006

PATIENT
  Age: 0 None
  Sex: Male

DRUGS (1)
  1. SUBUTEX [Suspect]
     Indication: PRODUCT USED FOR UNKNOWN INDICATION
     Dosage: MOTHER WAS TREATED WITH SUBUTEX 3 MG DAILY DURING ALL OF THE PREGNANCY
     Route: 064
     Dates: start: 200508, end: 20060426

REACTIONS (6)
  - Foetal exposure during pregnancy [Recovered/Resolved]
  - Heart disease congenital [Fatal]
  - Premature baby [Fatal]
  - Hypotonia neonatal [Unknown]
  - Poor sucking reflex [Unknown]
  - Agitation neonatal [Unknown]
